FAERS Safety Report 14973047 (Version 1)
Quarter: 2018Q2

REPORT INFORMATION
  Report Type: Spontaneous
  Country: US (occurrence: US)
  Receive Date: 20180605
  Receipt Date: 20180605
  Transmission Date: 20180711
  Serious: Yes (Other)
  Sender: FDA-Public Use
  Company Number: PHEH2018US021197

PATIENT

DRUGS (1)
  1. KYMRIAH [Suspect]
     Active Substance: TISAGENLECLEUCEL
     Indication: PRODUCT USED FOR UNKNOWN INDICATION
     Route: 065

REACTIONS (7)
  - Tachycardia [Recovering/Resolving]
  - Hypoxia [Recovering/Resolving]
  - Fluid overload [Recovering/Resolving]
  - Hepatomegaly [Recovering/Resolving]
  - Electrolyte imbalance [Recovering/Resolving]
  - Cytokine release syndrome [Recovering/Resolving]
  - Blood bilirubin increased [Recovering/Resolving]
